FAERS Safety Report 9730217 (Version 2)
Quarter: 2013Q4

REPORT INFORMATION
  Report Type: Report from Study
  Country: JP (occurrence: JP)
  Receive Date: 20131202
  Receipt Date: 20131226
  Transmission Date: 20140711
  Serious: Yes (Death, Life-Threatening, Hospitalization)
  Sender: FDA-Public Use
  Company Number: JP-AMGEN-JPNCT2013084562

PATIENT
  Age: 69 Year
  Sex: Female
  Weight: 40 kg

DRUGS (39)
  1. ROMIPLOSTIM - KHK [Suspect]
     Indication: IMMUNE THROMBOCYTOPENIC PURPURA
     Dosage: 7 MUG/KG, QWK
     Route: 058
     Dates: start: 20130628, end: 20131023
  2. PREDNISOLONE [Concomitant]
     Indication: IMMUNE THROMBOCYTOPENIC PURPURA
     Dosage: 5 MG, UNK
     Route: 048
     Dates: start: 20130628
  3. PREDNISOLONE [Concomitant]
     Dosage: 17.5 MG, UNK
     Route: 048
     Dates: start: 20130628, end: 20130704
  4. PREDNISOLONE [Concomitant]
     Dosage: 15 MG, UNK
     Route: 048
     Dates: start: 20130705, end: 20130718
  5. PREDNISOLONE [Concomitant]
     Dosage: 12.5 MG, UNK
     Route: 048
     Dates: start: 20130719, end: 20130815
  6. PREDNISOLONE [Concomitant]
     Dosage: 40 MG, UNK
     Route: 048
     Dates: start: 20130823, end: 20130823
  7. PREDNISOLONE [Concomitant]
     Dosage: 30 MG, UNK
     Route: 048
     Dates: start: 20130824, end: 20130828
  8. PREDNISOLONE [Concomitant]
     Dosage: 15 MG, UNK
     Route: 048
     Dates: start: 20130829, end: 20130901
  9. PREDNISOLONE [Concomitant]
     Dosage: 12.5 MG, UNK
     Route: 048
     Dates: start: 20130902, end: 20130903
  10. PREDNISOLONE [Concomitant]
     Dosage: 10 MG, UNK
     Route: 048
     Dates: start: 20130904, end: 20131008
  11. PREDNISOLONE [Concomitant]
     Dosage: 7.5 MG, UNK
     Route: 048
     Dates: start: 20131009, end: 20131112
  12. PREDONINE                          /00016201/ [Concomitant]
     Indication: IMMUNE THROMBOCYTOPENIC PURPURA
     Dosage: 40 MG, UNK
     Route: 065
     Dates: start: 20130816, end: 20130822
  13. AMLODIPINE [Concomitant]
     Indication: IMMUNE THROMBOCYTOPENIC PURPURA
     Dosage: 10 MG, UNK
     Route: 048
     Dates: start: 20130619
  14. AMLODIPINE [Concomitant]
     Indication: HYPERTENSION
  15. NEXIUM                             /01479302/ [Concomitant]
     Indication: IMMUNE THROMBOCYTOPENIC PURPURA
     Dosage: 20 MG, UNK
     Route: 048
     Dates: start: 20130619
  16. DOGMATYL [Concomitant]
     Indication: IMMUNE THROMBOCYTOPENIC PURPURA
     Dosage: 50 MG, UNK
     Route: 048
     Dates: start: 20130620, end: 20130815
  17. DOGMATYL [Concomitant]
     Indication: INSOMNIA
  18. ZOLPIDEM TARTRATE [Concomitant]
     Indication: IMMUNE THROMBOCYTOPENIC PURPURA
     Dosage: 5 MG, UNK
     Route: 048
     Dates: start: 20130619, end: 20130815
  19. ZOLPIDEM TARTRATE [Concomitant]
     Indication: INSOMNIA
  20. BROTIZOLAM [Concomitant]
     Indication: IMMUNE THROMBOCYTOPENIC PURPURA
     Dosage: 0.25 MG, UNK
     Route: 048
     Dates: start: 20130619, end: 20130815
  21. BROTIZOLAM [Concomitant]
     Indication: INSOMNIA
  22. FUROSEMIDE [Concomitant]
     Indication: IMMUNE THROMBOCYTOPENIC PURPURA
     Dosage: 80 MG, UNK
     Route: 048
     Dates: start: 20130619, end: 20130619
  23. FUROSEMIDE [Concomitant]
     Indication: FLUID RETENTION
  24. BACTRAMIN [Concomitant]
     Indication: PROPHYLAXIS
     Dosage: UNK
     Route: 065
  25. GLUFAST [Concomitant]
     Indication: DIABETES MELLITUS
     Dosage: UNK
     Route: 048
  26. GLUCONSAN K [Concomitant]
     Indication: HYPOKALAEMIA
     Dosage: UNK
     Route: 048
  27. NICORANDIL [Concomitant]
     Indication: HYPERTENSION
     Dosage: UNK
     Route: 065
  28. ARTIST [Concomitant]
     Indication: HYPERTENSION
     Dosage: UNK
     Route: 048
  29. ALDACTONE A [Concomitant]
     Indication: FLUID RETENTION
     Dosage: UNK
     Route: 048
  30. SAMSCA [Concomitant]
     Indication: FLUID RETENTION
     Dosage: UNK
     Route: 048
  31. FLAGYL                             /00012501/ [Concomitant]
     Indication: ENTEROCOLITIS
     Dosage: UNK
     Route: 048
  32. AMBROXOL HYDROCHLORIDE [Concomitant]
     Indication: PROPHYLAXIS
     Dosage: UNK
     Route: 048
  33. MIYA BM [Concomitant]
     Indication: ENTEROCOLITIS
     Dosage: UNK
     Route: 048
  34. HANP [Concomitant]
     Indication: FLUID RETENTION
     Dosage: UNK
     Route: 065
  35. FIRSTCIN [Concomitant]
     Indication: SEPSIS
     Dosage: UNK
     Route: 065
  36. CANCIDAS [Concomitant]
     Indication: SEPSIS
     Dosage: UNK
     Route: 065
  37. ZOSYN [Concomitant]
     Indication: SEPSIS
     Dosage: UNK
     Route: 065
  38. FENTANYL [Concomitant]
     Indication: PROPHYLAXIS
     Dosage: UNK
     Route: 065
  39. AMIGRAND [Concomitant]
     Indication: DEHYDRATION
     Dosage: UNK
     Route: 065

REACTIONS (3)
  - Renal failure [Fatal]
  - Gastrointestinal haemorrhage [Fatal]
  - Sepsis [Recovering/Resolving]
